FAERS Safety Report 9563604 (Version 1)
Quarter: 2013Q3

REPORT INFORMATION
  Report Type: Spontaneous
  Country: US (occurrence: None)
  Receive Date: 20130926
  Receipt Date: 20130926
  Transmission Date: 20140515
  Serious: Yes (Hospitalization)
  Sender: FDA-Public Use
  Company Number: None

PATIENT
  Age: 83 Year
  Sex: Male
  Weight: 91.5 kg

DRUGS (1)
  1. DABIGATRAN [Suspect]
     Route: 048
     Dates: start: 20120301

REACTIONS (3)
  - Renal failure [None]
  - Haemoglobin decreased [None]
  - Myocardial infarction [None]
